FAERS Safety Report 17836683 (Version 1)
Quarter: 2020Q2

REPORT INFORMATION
  Report Type: Spontaneous
  Country: HR (occurrence: HR)
  Receive Date: 20200528
  Receipt Date: 20200528
  Transmission Date: 20200714
  Serious: Yes (Other)
  Sender: FDA-Public Use
  Company Number: HR-BAYER-2020-093512

PATIENT
  Age: 16 Year
  Sex: Female

DRUGS (8)
  1. CLARITINE 10 MG [Suspect]
     Active Substance: LORATADINE
     Dosage: 1 DF, QD
     Route: 048
     Dates: start: 20200121, end: 20200121
  2. FAMOSAN [Suspect]
     Active Substance: FAMOTIDINE
     Dosage: 1 DF, QD
     Route: 048
     Dates: start: 20200121, end: 20200121
  3. NEOFEN [DICLOFENAC SODIUM] [Suspect]
     Active Substance: DICLOFENAC SODIUM
     Dosage: 1 DF, QD
     Route: 048
     Dates: start: 20200121, end: 20200121
  4. AMPRIL HL [Suspect]
     Active Substance: HYDROCHLOROTHIAZIDE\RAMIPRIL
     Dosage: 30 DF, QD
     Route: 048
     Dates: start: 20200121, end: 20200121
  5. LEKADOL [Suspect]
     Active Substance: ACETAMINOPHEN
     Dosage: 15 G, QD
     Route: 048
     Dates: start: 20200121, end: 20200121
  6. GASTAL [Suspect]
     Active Substance: ALUMINUM HYDROXIDE - MAGNESIUM CARBONATE, CO-DRIED GEL\MAGNESIUM HYDROXIDE
     Dosage: 1 DF, QD
     Route: 048
     Dates: start: 20200121, end: 20200121
  7. BUSCOPAN [Suspect]
     Active Substance: BUTYLSCOPOLAMINE BROMIDE
     Route: 048
     Dates: start: 20200121, end: 20200121
  8. NIXAR [BILASTINE] [Suspect]
     Active Substance: BILASTINE
     Dosage: 1 DF, QD
     Route: 048
     Dates: start: 20200121, end: 20200121

REACTIONS (3)
  - Somnolence [Unknown]
  - Suicide attempt [Unknown]
  - Intentional overdose [Unknown]

NARRATIVE: CASE EVENT DATE: 20200121
